FAERS Safety Report 25717536 (Version 1)
Quarter: 2025Q3

REPORT INFORMATION
  Report Type: Spontaneous
  Country: US (occurrence: US)
  Receive Date: 20250822
  Receipt Date: 20250822
  Transmission Date: 20251020
  Serious: Yes (Other)
  Sender: AMGEN
  Company Number: US-AMGEN-USASP2025165365

PATIENT
  Age: 22 Year
  Sex: Female

DRUGS (2)
  1. RAYOS [Suspect]
     Active Substance: PREDNISONE
     Indication: Urticaria
     Route: 065
  2. ALENDRONATE [Concomitant]
     Active Substance: ALENDRONATE SODIUM
     Dosage: UNK, QWK (ONE PILL A WEEK)
     Route: 065

REACTIONS (3)
  - Chronic kidney disease [Unknown]
  - Cerebrovascular accident [Unknown]
  - Thrombosis [Unknown]
